FAERS Safety Report 25951843 (Version 5)
Quarter: 2025Q4

REPORT INFORMATION
  Report Type: Spontaneous
  Country: JP (occurrence: JP)
  Receive Date: 20251023
  Receipt Date: 20251223
  Transmission Date: 20260117
  Serious: Yes (Hospitalization, Other)
  Sender: BRISTOL-MYERS SQUIBB COMPANY
  Company Number: JP-TAIHO-2025-011093

PATIENT
  Age: 46 Year
  Sex: Female

DRUGS (7)
  1. ABRAXANE [Suspect]
     Active Substance: PACLITAXEL
     Indication: Breast cancer stage IV
     Route: 041
     Dates: start: 202210
  2. ABRAXANE [Suspect]
     Active Substance: PACLITAXEL
     Route: 041
     Dates: end: 20231025
  3. ABRAXANE [Suspect]
     Active Substance: PACLITAXEL
     Dosage: NI, AT A REDUCED DOSE, WITH CANCELLATION
     Route: 041
  4. PERJETA [Suspect]
     Active Substance: PERTUZUMAB
     Indication: Breast cancer stage IV
     Dosage: WITH CANCELLATION
  5. PERJETA [Suspect]
     Active Substance: PERTUZUMAB
     Dosage: NI, AT A REDUCED DOSE, WITH CANCELLATION
  6. TRASTUZUMAB [Suspect]
     Active Substance: TRASTUZUMAB
     Indication: Breast cancer stage IV
     Dosage: WITH CANCELLATION
  7. TRASTUZUMAB [Suspect]
     Active Substance: TRASTUZUMAB
     Dosage: NI, AT A REDUCED DOSE, WITH CANCELLATION

REACTIONS (6)
  - Clostridium difficile colitis [Recovered/Resolved]
  - Cytomegalovirus enterocolitis [Recovered/Resolved]
  - Diarrhoea [Unknown]
  - Physical deconditioning [Unknown]
  - Malaise [Recovered/Resolved]
  - Neuropathy peripheral [Recovering/Resolving]

NARRATIVE: CASE EVENT DATE: 20221104
